FAERS Safety Report 25815766 (Version 1)
Quarter: 2025Q3

REPORT INFORMATION
  Report Type: Spontaneous
  Country: US (occurrence: US)
  Receive Date: 20250918
  Receipt Date: 20250918
  Transmission Date: 20251021
  Serious: No
  Sender: CATALYST PHARMA
  Company Number: US-CATALYST PHARMACEUTICALS, INC-US-CATA-24-00835

PATIENT
  Sex: Female

DRUGS (3)
  1. FYCOMPA [Suspect]
     Active Substance: PERAMPANEL
     Indication: Product used for unknown indication
     Route: 065
     Dates: start: 2024, end: 2024
  2. ASMs [Concomitant]
     Indication: Product used for unknown indication
     Route: 065
  3. VINPAT [Concomitant]
     Indication: Product used for unknown indication
     Route: 065
     Dates: start: 2024

REACTIONS (2)
  - Personality change [Unknown]
  - Anger [Unknown]

NARRATIVE: CASE EVENT DATE: 20240101
